FAERS Safety Report 9581255 (Version 2)
Quarter: 2014Q2

REPORT INFORMATION
  Report Type: Spontaneous
  Country: US (occurrence: US)
  Receive Date: 20131002
  Receipt Date: 20140508
  Transmission Date: 20141212
  Serious: No
  Sender: FDA-Public Use
  Company Number: US-PFIZER INC-2013278780

PATIENT
  Age: 81 Year
  Sex: Female

DRUGS (6)
  1. CADUET [Suspect]
     Dosage: 5MG/10 MG, DAILY
  2. PROTONIX [Suspect]
     Dosage: 40 MG, UNK
  3. ASA [Concomitant]
     Dosage: UNK
  4. VIT D [Concomitant]
     Dosage: UNK
  5. ALPRAZOLAM [Concomitant]
     Dosage: UNK
  6. CALCIUM [Concomitant]
     Dosage: UNK

REACTIONS (1)
  - Weight decreased [Unknown]
